FAERS Safety Report 5461020-1 (Version None)
Quarter: 2007Q3

REPORT INFORMATION
  Report Type: 
  Country: None (occurrence: None)
  Receive Date: 20070822
  Receipt Date: 20060823
  Transmission Date: 20080115
  Serious: Yes (Disabling, Other)
  Sender: FDA-Public Use
  Company Number: 2006103376

PATIENT
  Sex: Female

DRUGS (4)
  1. NORVASC [Suspect]
     Indication: HYPERTENSION
     Dosage: 10 MG, QD, ORAL
     Route: 048
  2. CIPRO [Concomitant]
  3. LASIX [Concomitant]
  4. DRUG USED IN DIABETES [Concomitant]

REACTIONS (1)
  - OEDEMA PERIPHERAL [None]
